FAERS Safety Report 4821847-3 (Version None)
Quarter: 2005Q4

REPORT INFORMATION
  Report Type: 
  Country: None (occurrence: None)
  Receive Date: 20051102
  Receipt Date: 20051019
  Transmission Date: 20060501
  Serious: Yes (Hospitalization)
  Sender: FDA-Public Use
  Company Number: JP_051007920

PATIENT
  Age: 76 Year
  Sex: Female
  Weight: 52 kg

DRUGS (4)
  1. EVISTA [Suspect]
     Indication: OSTEOPOROSIS POSTMENOPAUSAL
     Dosage: 60 MG DAY
     Dates: start: 20050214, end: 20050425
  2. PLATIBIT            (ALFACALCIDOL) [Concomitant]
  3. METHARMON F [Concomitant]
  4. JUMI-HAIDOKU-TO [Concomitant]

REACTIONS (4)
  - ENDOMETRIAL HYPERTROPHY [None]
  - FEELING HOT [None]
  - VULVAL DISORDER [None]
  - VULVAL OEDEMA [None]
